FAERS Safety Report 9017127 (Version 1)
Quarter: 2013Q1

REPORT INFORMATION
  Report Type: Spontaneous
  Country: US (occurrence: US)
  Receive Date: 20130117
  Receipt Date: 20130117
  Transmission Date: 20140127
  Serious: No
  Sender: FDA-Public Use
  Company Number: US-009507513-1301USA006716

PATIENT
  Sex: Female

DRUGS (5)
  1. FARESTON [Suspect]
     Dosage: 60 MG, QD
     Route: 048
  2. SYNTHROID [Interacting]
  3. PROZAC [Interacting]
  4. ADDERALL TABLETS [Interacting]
  5. RESTORIL [Interacting]

REACTIONS (4)
  - Weight increased [Unknown]
  - Insomnia [Unknown]
  - Night sweats [Unknown]
  - Drug interaction [Unknown]
